FAERS Safety Report 8027574-6 (Version None)
Quarter: 2012Q1

REPORT INFORMATION
  Report Type: 
  Country: None (occurrence: None)
  Receive Date: 20120106
  Receipt Date: 20120103
  Transmission Date: 20120608
  Serious: Yes (Death)
  Sender: FDA-Public Use
  Company Number: DE-JNJFOC-20120100355

PATIENT
  Age: 46 Year
  Sex: Male

DRUGS (7)
  1. PALIPERIDONE [Suspect]
     Indication: PRODUCT USED FOR UNKNOWN INDICATION
     Route: 065
     Dates: start: 20111220
  2. RISPERDAL [Suspect]
     Route: 048
     Dates: start: 20111125, end: 20111206
  3. PALIPERIDONE [Suspect]
     Route: 065
     Dates: start: 20110929
  4. AKINETON [Concomitant]
     Indication: HYPOKINESIA
     Route: 065
  5. RISPERDAL [Suspect]
     Indication: PRODUCT USED FOR UNKNOWN INDICATION
     Route: 048
     Dates: start: 20111207, end: 20111223
  6. LORAZEPAM [Concomitant]
     Route: 065
  7. VALERIAN [Concomitant]
     Route: 065

REACTIONS (1)
  - DEATH [None]
